FAERS Safety Report 19460880 (Version 1)
Quarter: 2021Q2

REPORT INFORMATION
  Report Type: Spontaneous
  Country: GB (occurrence: GB)
  Receive Date: 20210625
  Receipt Date: 20210625
  Transmission Date: 20210717
  Serious: Yes (Life-Threatening, Hospitalization, Disabling, Other)
  Sender: FDA-Public Use
  Company Number: GB-AUROBINDO-AUR-APL-2010-01121

PATIENT
  Age: 55 Year
  Sex: Female
  Weight: 84 kg

DRUGS (4)
  1. SIMVASTATIN 10 MG FILM COATED TABLETS [Suspect]
     Active Substance: SIMVASTATIN
     Dosage: 40 MG,ONCE A DAY,
     Route: 048
     Dates: start: 200908, end: 20100405
  2. SIMVASTATIN 10 MG FILM COATED TABLETS [Suspect]
     Active Substance: SIMVASTATIN
     Indication: BLOOD CHOLESTEROL INCREASED
     Dosage: 40 MG,ONCE A DAY,
     Route: 048
     Dates: start: 20031001, end: 200902
  3. BEZAFIBRATE [Suspect]
     Active Substance: BEZAFIBRATE
     Indication: BLOOD CHOLESTEROL INCREASED
     Dosage: UNK
     Route: 048
     Dates: start: 20090401, end: 20090501
  4. NIACIN. [Suspect]
     Active Substance: NIACIN
     Indication: PRODUCT USED FOR UNKNOWN INDICATION
     Dosage: UNK
     Route: 048
     Dates: start: 20090501, end: 20090801

REACTIONS (6)
  - Acute kidney injury [Unknown]
  - Rhabdomyolysis [Recovering/Resolving]
  - Muscular weakness [Unknown]
  - Myalgia [Unknown]
  - Autoimmune hepatitis [Recovering/Resolving]
  - Jaundice [Unknown]

NARRATIVE: CASE EVENT DATE: 2010
